FAERS Safety Report 4727282-0 (Version None)
Quarter: 2005Q3

REPORT INFORMATION
  Report Type: 
  Country: None (occurrence: None)
  Receive Date: 20050726
  Receipt Date: 20050715
  Transmission Date: 20060218
  Serious: Yes (Hospitalization, Other)
  Sender: FDA-Public Use
  Company Number: 2005016042

PATIENT
  Sex: Male

DRUGS (1)
  1. NEURONTIN [Suspect]
     Indication: RESTLESS LEGS SYNDROME
     Dates: start: 19990907

REACTIONS (31)
  - AGGRESSION [None]
  - AGITATION [None]
  - AMNESIA [None]
  - BACTERAEMIA [None]
  - BIPOLAR DISORDER [None]
  - BRAIN OEDEMA [None]
  - CEREBROVASCULAR ACCIDENT [None]
  - COMA [None]
  - COMPUTERISED TOMOGRAM ABNORMAL [None]
  - DRUG DEPENDENCE [None]
  - DRUG INEFFECTIVE [None]
  - ENCEPHALOMALACIA [None]
  - FAECAL INCONTINENCE [None]
  - GENERAL PHYSICAL HEALTH DETERIORATION [None]
  - GUN SHOT WOUND [None]
  - HEAD INJURY [None]
  - MAJOR DEPRESSION [None]
  - PARAPARESIS [None]
  - PNEUMONIA [None]
  - PULMONARY CONGESTION [None]
  - RESPIRATORY FAILURE [None]
  - SIMPLE PARTIAL SEIZURES [None]
  - SINUS DISORDER [None]
  - SKIN ULCER [None]
  - SUBDURAL HAEMATOMA [None]
  - SUICIDE ATTEMPT [None]
  - THROMBOSIS [None]
  - TRAUMATIC BRAIN INJURY [None]
  - URINARY INCONTINENCE [None]
  - WOUND DEHISCENCE [None]
  - WOUND INFECTION [None]
